FAERS Safety Report 9690133 (Version 2)
Quarter: 2013Q4

REPORT INFORMATION
  Report Type: Report from Study
  Country: AU (occurrence: AU)
  Receive Date: 20131115
  Receipt Date: 20131115
  Transmission Date: 20140711
  Serious: Yes (Death, Other)
  Sender: FDA-Public Use
  Company Number: PHHY2013AU111164

PATIENT
  Age: 37 Year
  Sex: Male
  Weight: 184 kg

DRUGS (9)
  1. CLOZARIL [Suspect]
     Indication: SCHIZOPHRENIA
     Dosage: 375 MG, DAILY
     Dates: start: 20070831
  2. ATORVASTATIN [Concomitant]
     Indication: BLOOD CHOLESTEROL
     Dosage: 10 MG, DAILY
     Route: 048
     Dates: start: 2012
  3. VALSARTAN [Concomitant]
     Indication: HYPERTENSION
     Dosage: 80 MG, DAILY
     Route: 048
     Dates: start: 2012
  4. ABILIFY [Concomitant]
     Indication: SCHIZOPHRENIA
     Dosage: 10 MG, UNK
     Route: 048
     Dates: start: 201309, end: 201310
  5. AMISULPRIDE [Concomitant]
     Dosage: UNK UKN, UNK
     Dates: start: 200712
  6. AMISULPRIDE [Concomitant]
     Dosage: 400 MG, UNK
     Dates: start: 2009
  7. LAMOTRIGINE [Concomitant]
     Dosage: 150 MG, UNK
  8. ARIPIPRAZOLE [Concomitant]
     Dosage: 10 MG, UNK
  9. QUETIAPINE [Concomitant]
     Dosage: 900 MG, UNK
     Dates: start: 200703

REACTIONS (19)
  - Myocardial infarction [Fatal]
  - Seborrhoeic keratosis [Unknown]
  - Systolic dysfunction [Unknown]
  - Bipolar disorder [Unknown]
  - Obesity [Unknown]
  - Hyperphagia [Unknown]
  - Type 2 diabetes mellitus [Unknown]
  - Schizophrenia [Unknown]
  - Delusional disorder, mixed type [Unknown]
  - Body dysmorphic disorder [Unknown]
  - Delusion [Unknown]
  - Dyspnoea exertional [Unknown]
  - Myopathy [Unknown]
  - Judgement impaired [Unknown]
  - Lipohypertrophy [Unknown]
  - Sleep apnoea syndrome [Unknown]
  - Hypertension [Unknown]
  - Antipsychotic drug level increased [Unknown]
  - Dyslipidaemia [Unknown]
